FAERS Safety Report 14221696 (Version 2)
Quarter: 2017Q4

REPORT INFORMATION
  Report Type: Report from Study
  Country: BR (occurrence: BR)
  Receive Date: 20171123
  Receipt Date: 20171225
  Transmission Date: 20180321
  Serious: Yes (Hospitalization, Other)
  Sender: FDA-Public Use
  Company Number: BR-UCBSA-2017034220

PATIENT
  Sex: Male
  Weight: 80 kg

DRUGS (13)
  1. ARAVA [Concomitant]
     Active Substance: LEFLUNOMIDE
     Indication: RHEUMATOID ARTHRITIS
     Dosage: 20 MG, ONCE DAILY (QD)
     Route: 048
     Dates: start: 2013
  2. PREDNISONE. [Concomitant]
     Active Substance: PREDNISONE
     Dosage: 5 MG, ONCE DAILY (QD)
     Route: 048
     Dates: start: 2016, end: 201707
  3. EXODUS//NICOTINE [Concomitant]
     Active Substance: NICOTINE
     Indication: PANIC DISORDER
     Dosage: 10 MG, ONCE DAILY (QD)
     Route: 048
     Dates: start: 2014
  4. OMEPRAZOL [Concomitant]
     Active Substance: OMEPRAZOLE
     Dosage: 20 MG, ONCE DAILY (QD)
     Route: 048
     Dates: start: 2013
  5. PREDNISONE. [Concomitant]
     Active Substance: PREDNISONE
     Dosage: 10 MG, ONCE DAILY (QD)
     Route: 048
     Dates: start: 20170914
  6. PREDNISONE. [Concomitant]
     Active Substance: PREDNISONE
     Dosage: 20 MG, ONCE DAILY (QD)
     Route: 048
     Dates: start: 201707, end: 20170913
  7. DIPYRONE [Concomitant]
     Active Substance: DIPYRONE
     Indication: PAIN
     Dosage: 600 MG, AS NEEDED (PRN)
     Dates: start: 201706, end: 201709
  8. LEVOFLOXACIN. [Concomitant]
     Active Substance: LEVOFLOXACIN
     Indication: SURGERY
     Dosage: 500 MG, ONCE DAILY (QD)
     Route: 048
     Dates: start: 20171024
  9. PREDNISONE. [Concomitant]
     Active Substance: PREDNISONE
     Indication: RHEUMATOID ARTHRITIS
     Dosage: 20 MG, ONCE DAILY (QD)
     Route: 048
     Dates: start: 2013, end: 2016
  10. PIROXICAM. [Concomitant]
     Active Substance: PIROXICAM
     Indication: SURGERY
     Dosage: UNK
     Dates: start: 20171024
  11. LOSARTAN. [Concomitant]
     Active Substance: LOSARTAN
     Indication: HYPERTENSION
     Dosage: 100 MG, ONCE DAILY (QD)
     Route: 048
     Dates: start: 2009
  12. NOVALGINA [Concomitant]
     Active Substance: METAMIZOLE SODIUM
     Indication: PROCEDURAL PAIN
     Dosage: UNK, AS NEEDED (PRN)
     Dates: start: 20171024
  13. CIMZIA [Suspect]
     Active Substance: CERTOLIZUMAB PEGOL
     Indication: RHEUMATOID ARTHRITIS
     Dosage: 400 MG, MONTHLY (QM)
     Dates: start: 2014

REACTIONS (10)
  - Panic disorder [Recovering/Resolving]
  - Rheumatoid arthritis [Recovered/Resolved]
  - Pain [Recovered/Resolved]
  - Hypoaesthesia [Not Recovered/Not Resolved]
  - Gait disturbance [Not Recovered/Not Resolved]
  - Unevaluable event [Not Recovered/Not Resolved]
  - Drug ineffective [Unknown]
  - Osteoporosis [Not Recovered/Not Resolved]
  - Nephrolithiasis [Recovered/Resolved]
  - Pollakiuria [Not Recovered/Not Resolved]

NARRATIVE: CASE EVENT DATE: 2014
